FAERS Safety Report 19435625 (Version 1)
Quarter: 2021Q2

REPORT INFORMATION
  Report Type: Spontaneous
  Country: AU (occurrence: AU)
  Receive Date: 20210618
  Receipt Date: 20210618
  Transmission Date: 20210717
  Serious: Yes (Hospitalization, Other)
  Sender: FDA-Public Use
  Company Number: AU-CELLTRION-2021-AU-000183

PATIENT
  Age: 51 Year
  Sex: Female

DRUGS (3)
  1. TAPENTADOL [Suspect]
     Active Substance: TAPENTADOL
     Indication: NEURALGIA
     Dosage: 250 MG TWICE DAILY
  2. PREGABALIN (NON?SPECIFIC) [Suspect]
     Active Substance: PREGABALIN
     Indication: NEURALGIA
     Dosage: 300 MG TWICE DAILY PLUS 75 MG AS REQUIRED
  3. PAROXETINE. [Concomitant]
     Active Substance: PAROXETINE
     Indication: DEPRESSION
     Dosage: 20 MG DAILY

REACTIONS (3)
  - Somnolence [Unknown]
  - Epileptic encephalopathy [Recovered/Resolved]
  - Agitation [Unknown]
